FAERS Safety Report 16764032 (Version 1)
Quarter: 2019Q3

REPORT INFORMATION
  Report Type: Spontaneous
  Country: CN (occurrence: CN)
  Receive Date: 20190902
  Receipt Date: 20190902
  Transmission Date: 20191005
  Serious: Yes (Other)
  Sender: FDA-Public Use
  Company Number: PHHY2019CN202005

PATIENT
  Age: 26 Year
  Sex: Male

DRUGS (2)
  1. CARBAMAZEPINE. [Suspect]
     Active Substance: CARBAMAZEPINE
     Dosage: 0.2 UNK, TID
     Route: 048
  2. CARBAMAZEPINE. [Suspect]
     Active Substance: CARBAMAZEPINE
     Indication: PERIPHERAL NERVE INJURY
     Dosage: 0.1 UNK, TID
     Route: 048

REACTIONS (8)
  - Lower respiratory tract infection [Unknown]
  - Rash [Not Recovered/Not Resolved]
  - Blister [Unknown]
  - Mouth ulceration [Not Recovered/Not Resolved]
  - Condition aggravated [Unknown]
  - Oral pain [Unknown]
  - Renal injury [Unknown]
  - Dermatitis exfoliative [Unknown]

NARRATIVE: CASE EVENT DATE: 20121206
